FAERS Safety Report 6944059-6 (Version None)
Quarter: 2010Q3

REPORT INFORMATION
  Report Type: 
  Country: None (occurrence: None)
  Receive Date: 20100827
  Receipt Date: 20100820
  Transmission Date: 20110219
  Serious: Yes (Hospitalization)
  Sender: FDA-Public Use
  Company Number: 2005BI017095

PATIENT
  Age: 45 Year
  Sex: Male
  Weight: 147 kg

DRUGS (3)
  1. AVONEX [Suspect]
     Indication: MULTIPLE SCLEROSIS
     Route: 030
     Dates: end: 20030101
  2. AVONEX [Suspect]
     Route: 030
     Dates: start: 20030101
  3. AVONEX [Suspect]
     Route: 030
     Dates: end: 20100604

REACTIONS (15)
  - ARTHRALGIA [None]
  - BONE DISORDER [None]
  - CELLULITIS [None]
  - DRUG INTOLERANCE [None]
  - FACIAL BONES FRACTURE [None]
  - FALL [None]
  - HAND FRACTURE [None]
  - INFLUENZA LIKE ILLNESS [None]
  - MOTOR DYSFUNCTION [None]
  - MULTIPLE SCLEROSIS RELAPSE [None]
  - POST PROCEDURAL COMPLICATION [None]
  - SPINAL FRACTURE [None]
  - SPINAL OPERATION [None]
  - TOOTH LOSS [None]
  - WOUND INFECTION STAPHYLOCOCCAL [None]
